FAERS Safety Report 16777822 (Version 1)
Quarter: 2019Q3

REPORT INFORMATION
  Report Type: Spontaneous
  Country: US (occurrence: US)
  Receive Date: 20190905
  Receipt Date: 20190905
  Transmission Date: 20191005
  Serious: Yes (Other)
  Sender: FDA-Public Use
  Company Number: PHHY2019US205573

PATIENT
  Age: 44 Year
  Sex: Female

DRUGS (4)
  1. AFINITOR [Suspect]
     Active Substance: EVEROLIMUS
     Indication: EWING^S SARCOMA
     Dosage: 10 MG, QD
     Route: 065
     Dates: start: 201712
  2. TEMOZOLOMIDE. [Suspect]
     Active Substance: TEMOZOLOMIDE
     Indication: EWING^S SARCOMA
     Dosage: 200 MG/M2/DAYX 5 EVERY 28 DAYS
     Route: 065
  3. AFINITOR [Suspect]
     Active Substance: EVEROLIMUS
     Indication: METASTASES TO MENINGES
  4. TEMOZOLOMIDE. [Suspect]
     Active Substance: TEMOZOLOMIDE
     Indication: METASTASES TO MENINGES

REACTIONS (4)
  - Malignant neoplasm progression [Not Recovered/Not Resolved]
  - Metastases to meninges [Not Recovered/Not Resolved]
  - Ewing^s sarcoma [Not Recovered/Not Resolved]
  - Product use in unapproved indication [Unknown]
